FAERS Safety Report 6734009-X (Version None)
Quarter: 2010Q2

REPORT INFORMATION
  Report Type: 
  Country: None (occurrence: None)
  Receive Date: 20100520
  Receipt Date: 20100511
  Transmission Date: 20101027
  Serious: Yes (Hospitalization, Disabling, Other)
  Sender: FDA-Public Use
  Company Number: US-JNJFOC-20100404047

PATIENT
  Sex: Male

DRUGS (7)
  1. LEVAQUIN [Suspect]
     Indication: POST PROCEDURAL INFECTION
     Route: 048
  2. LEVAQUIN [Suspect]
     Indication: URINARY TRACT INFECTION
     Route: 048
  3. LEVAQUIN [Suspect]
     Indication: FOLLICULITIS
     Route: 048
  4. DEPO-MEDROL [Suspect]
     Indication: EPICONDYLITIS
     Route: 065
  5. DEPO-MEDROL [Suspect]
     Indication: BURSITIS
     Route: 065
  6. DEPO-MEDROL [Suspect]
     Indication: OSTEOARTHRITIS
     Route: 065
  7. CIPRO [Suspect]
     Indication: INFECTION
     Route: 065

REACTIONS (3)
  - JOINT SPRAIN [None]
  - TENDON RUPTURE [None]
  - TENDONITIS [None]
